FAERS Safety Report 5738341-8 (Version None)
Quarter: 2008Q2

REPORT INFORMATION
  Report Type: 
  Country: None (occurrence: None)
  Receive Date: 20080514
  Receipt Date: 20080507
  Transmission Date: 20081010
  Serious: Yes (Death)
  Sender: FDA-Public Use
  Company Number: US-GENENTECH-255180

PATIENT
  Age: 65 Year
  Sex: Male
  Weight: 70.023 kg

DRUGS (13)
  1. ERLOTINIB [Suspect]
     Indication: NON-SMALL CELL LUNG CANCER
     Dosage: 150 MG, UNKNOWN
     Route: 048
     Dates: start: 20070501
  2. BEVACIZUMAB [Suspect]
     Indication: NON-SMALL CELL LUNG CANCER
     Dosage: 1200 MG, UNKNOWN
     Route: 042
     Dates: start: 20070501
  3. ADVAIR DISKUS 100/50 [Concomitant]
     Indication: CHRONIC OBSTRUCTIVE PULMONARY DISEASE
     Dosage: UNK, BID
     Route: 055
  4. ASPIRIN [Concomitant]
     Indication: PROPHYLAXIS
     Dosage: 80 MG, QD
  5. DILTIAZEM [Concomitant]
     Indication: HYPERTENSION
     Dosage: 180 MG, QD
  6. PEPCID [Concomitant]
     Indication: PROPHYLAXIS
     Dosage: 20 MG, BID
  7. AMIODARONE HCL [Concomitant]
     Indication: ATRIAL FIBRILLATION
     Dosage: 200 MG, TID
  8. TOPROL-XL [Concomitant]
     Indication: HYPERTENSION
     Dosage: 25 MG, QD
  9. MUCINEX [Concomitant]
     Indication: CHRONIC OBSTRUCTIVE PULMONARY DISEASE
     Dosage: UNK, BID
  10. PREDNISONE TAB [Concomitant]
     Indication: OSTEOARTHRITIS
     Dosage: 10 MG, QD
  11. AMARYL [Concomitant]
     Indication: DIABETES MELLITUS
     Dosage: 2 MG, QD
  12. ACCUPRIL [Concomitant]
     Indication: HYPERTENSION
     Dosage: 40 MG, QD
  13. ALBUTEROL [Concomitant]
     Indication: CHRONIC OBSTRUCTIVE PULMONARY DISEASE
     Dosage: UNK, BID

REACTIONS (1)
  - CARDIAC ARREST [None]
